FAERS Safety Report 5393266-5 (Version None)
Quarter: 2007Q3

REPORT INFORMATION
  Report Type: 
  Country: None (occurrence: None)
  Receive Date: 20070723
  Receipt Date: 20070716
  Transmission Date: 20080115
  Serious: Yes (Disabling)
  Sender: FDA-Public Use
  Company Number: GB-BAYER-200710726BNE

PATIENT
  Age: 57 Year
  Sex: Male

DRUGS (2)
  1. LEVITRA [Suspect]
     Indication: ERECTILE DYSFUNCTION
     Route: 048
     Dates: start: 20070129, end: 20070503
  2. FLUCLOXACILLIN [Concomitant]
     Indication: FOLLICULITIS
     Route: 048
     Dates: start: 20070330, end: 20070406

REACTIONS (1)
  - VISUAL DISTURBANCE [None]
